FAERS Safety Report 24601728 (Version 1)
Quarter: 2024Q4

REPORT INFORMATION
  Report Type: Spontaneous
  Country: US (occurrence: US)
  Receive Date: 20241111
  Receipt Date: 20241111
  Transmission Date: 20250115
  Serious: Yes (Death, Hospitalization, Other)
  Sender: SANDOZ
  Company Number: US-SANDOZ-SDZ2024US092811

PATIENT
  Sex: Female

DRUGS (20)
  1. ALBUTEROL SULFATE [Suspect]
     Active Substance: ALBUTEROL SULFATE
     Indication: Dyspnoea
     Dosage: 3 ML, Q4H
     Route: 055
     Dates: start: 20220527
  2. ATROPINE [Suspect]
     Active Substance: ATROPINE
     Indication: Secretion discharge
     Dosage: 2 DROP
     Route: 047
     Dates: start: 20220527
  3. BISACODYL [Suspect]
     Active Substance: BISACODYL
     Indication: Constipation
     Dosage: 1 DF (SUPPOSITORY)
     Route: 054
     Dates: start: 20220527
  4. CEFAZOLIN [Suspect]
     Active Substance: CEFAZOLIN
     Indication: Product used for unknown indication
     Dosage: UNK
     Route: 065
     Dates: start: 20220523
  5. CEFEPIME [Suspect]
     Active Substance: CEFEPIME HYDROCHLORIDE
     Indication: Product used for unknown indication
     Dosage: UNK
     Route: 065
     Dates: start: 202005, end: 202305
  6. KEFLEX [Suspect]
     Active Substance: CEPHALEXIN
     Indication: Product used for unknown indication
     Dosage: 500 MG, Q12H
     Route: 048
  7. LORAZEPAM [Suspect]
     Active Substance: LORAZEPAM
     Indication: Anxiety
     Dosage: 0.5 ML, Q4H
     Route: 048
     Dates: start: 20220527
  8. LORAZEPAM [Suspect]
     Active Substance: LORAZEPAM
     Indication: Agitation
  9. MEKINIST [Suspect]
     Active Substance: TRAMETINIB DIMETHYL SULFOXIDE
     Indication: Non-small cell lung cancer
     Dosage: 2 MG, QD
     Route: 048
  10. MORPHINE [Suspect]
     Active Substance: MORPHINE
     Indication: Pain
     Dosage: 0.25-1 ML, EVERY 1 HOUR AS NEEDED
     Route: 048
     Dates: start: 20220527
  11. MORPHINE [Suspect]
     Active Substance: MORPHINE
     Indication: Dyspnoea
  12. OMEPRAZOLE [Suspect]
     Active Substance: OMEPRAZOLE
     Indication: Gastrooesophageal reflux disease
     Dosage: 20 MG, QD
     Route: 048
  13. PROCHLORPERAZINE MALEATE [Suspect]
     Active Substance: PROCHLORPERAZINE MALEATE
     Indication: Product used for unknown indication
     Dosage: 10 MG, Q4H
     Route: 048
     Dates: start: 20220527
  14. TAFINLAR [Suspect]
     Active Substance: DABRAFENIB MESYLATE
     Indication: Non-small cell lung cancer
     Dosage: 1500 MG, BID
     Route: 048
     Dates: start: 20220429, end: 20220527
  15. TRELEGY ELLIPTA [Suspect]
     Active Substance: FLUTICASONE FUROATE\UMECLIDINIUM BROMIDE\VILANTEROL TRIFENATATE
     Indication: Lung disorder
     Dosage: 1 DF, QD 1 INHALATION (200MCG-62.5 MCG-25)
     Route: 055
     Dates: start: 20220527
  16. TYLENOL [Suspect]
     Active Substance: ACETAMINOPHEN
     Indication: Pain
     Dosage: 650 MG, Q6H
     Route: 048
     Dates: start: 20220527
  17. TYLENOL [Suspect]
     Active Substance: ACETAMINOPHEN
     Indication: Pyrexia
  18. VANCOMYCIN [Suspect]
     Active Substance: VANCOMYCIN
     Indication: Product used for unknown indication
     Dosage: UNK
     Route: 065
     Dates: start: 20210523, end: 20230523
  19. ACETAMINOPHEN [Concomitant]
     Active Substance: ACETAMINOPHEN
     Indication: Product used for unknown indication
     Dosage: 650 MG, Q6H (2 TABS)
     Route: 048
  20. ATIVAN [Concomitant]
     Active Substance: LORAZEPAM
     Indication: Product used for unknown indication
     Dosage: 2 MG/ML
     Route: 048

REACTIONS (19)
  - Pneumonia [Fatal]
  - Disease progression [Fatal]
  - Non-small cell lung cancer [Unknown]
  - Thoracic vertebral fracture [Unknown]
  - Lung cancer metastatic [Unknown]
  - Metastases to bone [Unknown]
  - Hypoxia [Unknown]
  - Cachexia [Unknown]
  - Immunodeficiency [Unknown]
  - Hypomagnesaemia [Unknown]
  - Infection [Unknown]
  - Metastases to central nervous system [Unknown]
  - Asthenia [Unknown]
  - Empyema [Unknown]
  - Leukocytosis [Unknown]
  - Chronic obstructive pulmonary disease [Unknown]
  - Pleural effusion [Recovering/Resolving]
  - Anaemia [Unknown]
  - Mucosal inflammation [Recovered/Resolved]
